FAERS Safety Report 10463668 (Version 1)
Quarter: 2014Q3

REPORT INFORMATION
  Report Type: Spontaneous
  Country: US (occurrence: None)
  Receive Date: 20140918
  Receipt Date: 20140918
  Transmission Date: 20150326
  Serious: Yes (Life-Threatening, Hospitalization)
  Sender: FDA-Public Use
  Company Number: None

PATIENT
  Age: 29 Year
  Sex: Female
  Weight: 72.58 kg

DRUGS (2)
  1. GENERESS FE [Suspect]
     Active Substance: ETHINYL ESTRADIOL\FERROUS FUMARATE\NORETHINDRONE
     Indication: CONTRACEPTION
     Dosage: 1 PILL/DAILY, ONCE DAILY, TAKEN BY MOUTH
     Route: 048
     Dates: start: 20131101, end: 20140422
  2. GENERESS FE [Suspect]
     Active Substance: ETHINYL ESTRADIOL\FERROUS FUMARATE\NORETHINDRONE
     Indication: MENSTRUATION IRREGULAR
     Dosage: 1 PILL/DAILY, ONCE DAILY, TAKEN BY MOUTH
     Route: 048
     Dates: start: 20131101, end: 20140422

REACTIONS (1)
  - Pulmonary embolism [None]

NARRATIVE: CASE EVENT DATE: 20140422
